FAERS Safety Report 8436339-2 (Version None)
Quarter: 2012Q2

REPORT INFORMATION
  Report Type: 
  Country: None (occurrence: None)
  Receive Date: 20120614
  Receipt Date: 20120606
  Transmission Date: 20120825
  Serious: Yes (Hospitalization)
  Sender: FDA-Public Use
  Company Number: JP-ROCHE-788492

PATIENT
  Sex: Female
  Weight: 63 kg

DRUGS (5)
  1. PREDNISOLONE [Concomitant]
     Dosage: NOTE: IT INCREASES AND DECREASES PROPERLY BY THE SYMPTOM.
     Route: 048
  2. BREDININ [Concomitant]
     Route: 048
  3. PREDNISOLONE [Concomitant]
     Dosage: NOTE: IT INCREASES AND DECREASES PROPERLY BY THE SYMPTOM.
     Route: 048
  4. COMELIAN [Concomitant]
     Route: 048
  5. AVASTIN [Suspect]
     Indication: CHOROIDAL NEOVASCULARISATION
     Dosage: DOSAGE IS UNCERTAIN.
     Route: 031
     Dates: start: 20110114, end: 20110114

REACTIONS (1)
  - NEPHROTIC SYNDROME [None]
